FAERS Safety Report 24987155 (Version 1)
Quarter: 2025Q1

REPORT INFORMATION
  Report Type: Spontaneous
  Country: ES (occurrence: ES)
  Receive Date: 20250219
  Receipt Date: 20250219
  Transmission Date: 20250409
  Serious: Yes (Hospitalization)
  Sender: PFIZER
  Company Number: None

PATIENT
  Age: 86 Year
  Sex: Male

DRUGS (2)
  1. SPIRONOLACTONE [Interacting]
     Active Substance: SPIRONOLACTONE
     Indication: Cardiac failure
     Dosage: 50 MG, DAILY
     Route: 048
     Dates: start: 2014
  2. FUROSEMIDE [Interacting]
     Active Substance: FUROSEMIDE
     Indication: Essential hypertension
     Dosage: 40 MG, DAILY
     Route: 048
     Dates: start: 201903

REACTIONS (3)
  - Drug interaction [Unknown]
  - Hyponatraemia [Not Recovered/Not Resolved]
  - Condition aggravated [Recovered/Resolved]

NARRATIVE: CASE EVENT DATE: 20220101
